FAERS Safety Report 15355493 (Version 2)
Quarter: 2018Q3

REPORT INFORMATION
  Report Type: Spontaneous
  Country: US (occurrence: US)
  Receive Date: 20180906
  Receipt Date: 20180928
  Transmission Date: 20181010
  Serious: Yes (Life-Threatening, Hospitalization, Other)
  Sender: FDA-Public Use
  Company Number: US-B.I. PHARMACEUTICALS,INC./RIDGEFIELD-2018-BI-044353

PATIENT
  Age: 63 Year
  Sex: Male
  Weight: 94.34 kg

DRUGS (1)
  1. JARDIANCE [Suspect]
     Active Substance: EMPAGLIFLOZIN
     Indication: TYPE 2 DIABETES MELLITUS
     Route: 065
     Dates: start: 20170420, end: 20180817

REACTIONS (1)
  - Necrotising fasciitis [Not Recovered/Not Resolved]

NARRATIVE: CASE EVENT DATE: 20170420
